FAERS Safety Report 5624804-2 (Version None)
Quarter: 2008Q1

REPORT INFORMATION
  Report Type: 
  Country: None (occurrence: None)
  Receive Date: 20080213
  Receipt Date: 20080201
  Transmission Date: 20080703
  Serious: Yes (Hospitalization)
  Sender: FDA-Public Use
  Company Number: CA-ROCHE-545600

PATIENT
  Age: 55 Year
  Sex: Male

DRUGS (4)
  1. PEGASYS [Suspect]
     Indication: DRUG USE FOR UNKNOWN INDICATION
     Dosage: SECOND COURSE OF TREATMENT
     Route: 058
     Dates: start: 20070328
  2. PEGASYS [Suspect]
     Dosage: FIRST COURSE OF TREATMENT
     Route: 058
     Dates: start: 20051130, end: 20060417
  3. COPEGUS [Suspect]
     Indication: DRUG USE FOR UNKNOWN INDICATION
     Dosage: SECOND COURSE OF TREATMENT
     Route: 048
     Dates: start: 20070328
  4. COPEGUS [Suspect]
     Dosage: FIRST COURSE OF TREATMENT
     Route: 048
     Dates: start: 20051130, end: 20060417

REACTIONS (5)
  - FATIGUE [None]
  - FLUID RETENTION [None]
  - HAEMOGLOBIN DECREASED [None]
  - HEART RATE INCREASED [None]
  - PULMONARY OEDEMA [None]
